FAERS Safety Report 25603519 (Version 1)
Quarter: 2025Q3

REPORT INFORMATION
  Report Type: Spontaneous
  Country: US (occurrence: US)
  Receive Date: 20250724
  Receipt Date: 20250724
  Transmission Date: 20251021
  Serious: Yes (Hospitalization)
  Sender: SANDOZ
  Company Number: US-MLMSERVICE-20250710-PI575013-00218-1

PATIENT
  Age: 75 Year
  Sex: Female

DRUGS (4)
  1. ADALIMUMAB [Suspect]
     Active Substance: ADALIMUMAB
     Indication: Immunosuppressant drug therapy
     Route: 065
  2. METHOTREXATE [Suspect]
     Active Substance: METHOTREXATE
     Indication: Immunosuppressant drug therapy
     Route: 065
  3. PREDNISONE [Suspect]
     Active Substance: PREDNISONE
     Indication: Haemoptysis
     Dosage: ATTEMPTS TO TAPER PREDNISONE BELOW 0.5 MG/KG AFTER 4 WEEKS
     Route: 065
  4. PREDNISONE [Suspect]
     Active Substance: PREDNISONE
     Indication: Pulmonary sarcoidosis
     Dosage: 60 MG, QD
     Route: 065

REACTIONS (2)
  - Pneumonia legionella [Unknown]
  - Renal disorder [Unknown]
